FAERS Safety Report 4880778-3 (Version None)
Quarter: 2006Q1

REPORT INFORMATION
  Report Type: 
  Country: None (occurrence: None)
  Receive Date: 20060111
  Receipt Date: 20050629
  Transmission Date: 20060701
  Serious: No
  Sender: FDA-Public Use
  Company Number: 2005S1000048

PATIENT
  Age: 72 Year
  Weight: 83 kg

DRUGS (26)
  1. CUBICIN [Suspect]
     Indication: STAPHYLOCOCCAL BACTERAEMIA
     Dosage: 500 MG;Q24H;IV
     Route: 042
     Dates: start: 20050302, end: 20050310
  2. COUMADIN [Concomitant]
  3. LOVENOX [Concomitant]
  4. REGULAR INSULIN [Concomitant]
  5. PROTONIX [Concomitant]
  6. SPIRIVA [Concomitant]
  7. ADVAIR DISKUS 100/50 [Concomitant]
  8. M.V.I. [Concomitant]
  9. VITAMIN V [Concomitant]
  10. ZINC SULFATE [Concomitant]
  11. COLACE [Concomitant]
  12. ZOLOFT [Concomitant]
  13. NYSTATIN [Concomitant]
  14. OXYTOCIN [Concomitant]
  15. TYLENOL (CAPLET) [Concomitant]
  16. OXYCODONE [Concomitant]
  17. ANZEMET [Concomitant]
  18. MORPHINE [Concomitant]
  19. PHENERGAN [Concomitant]
  20. VANCOMYCIN [Concomitant]
  21. CEFEPIME [Concomitant]
  22. LEVOFLOXACIN [Concomitant]
  23. GENTAMICIN [Concomitant]
  24. RIFAMPIN [Concomitant]
  25. PIPERACILLIN AND TAZOBACTAM [Concomitant]
  26. DOXYCYCLIN [Concomitant]

REACTIONS (1)
  - INTERNATIONAL NORMALISED RATIO INCREASED [None]
